FAERS Safety Report 7370557-X (Version None)
Quarter: 2011Q1

REPORT INFORMATION
  Report Type: 
  Country: None (occurrence: None)
  Receive Date: 20110323
  Receipt Date: 20110310
  Transmission Date: 20110831
  Serious: No
  Sender: FDA-Public Use
  Company Number: US-BAYER-2011-023321

PATIENT
  Sex: Female
  Weight: 122 kg

DRUGS (5)
  1. ATENOLOL [Concomitant]
  2. LASIX [Concomitant]
  3. ALEVE (CAPLET) [Suspect]
     Indication: ARTHRALGIA
     Dosage: DAILY DOSE 2 DF
     Dates: start: 20110307, end: 20110309
  4. LISINOPRIL [Concomitant]
  5. MOTRIN [Concomitant]

REACTIONS (1)
  - PARAESTHESIA [None]
